FAERS Safety Report 19219917 (Version 1)
Quarter: 2021Q2

REPORT INFORMATION
  Report Type: Spontaneous
  Country: DE (occurrence: DE)
  Receive Date: 20210505
  Receipt Date: 20210505
  Transmission Date: 20210717
  Serious: Yes (Hospitalization)
  Sender: FDA-Public Use
  Company Number: DE-DSJP-DSE-2021-113348

PATIENT
  Age: 68 Year
  Sex: Female
  Weight: 79 kg

DRUGS (1)
  1. LIXIANA [Suspect]
     Active Substance: EDOXABAN TOSYLATE
     Indication: ATRIAL FIBRILLATION
     Dosage: UNK
     Dates: start: 2017

REACTIONS (1)
  - Ovarian cyst [Not Recovered/Not Resolved]
